FAERS Safety Report 23652587 (Version 1)
Quarter: 2024Q1

REPORT INFORMATION
  Report Type: Spontaneous
  Country: US (occurrence: None)
  Receive Date: 20240320
  Receipt Date: 20240320
  Transmission Date: 20240409
  Serious: Yes (Other)
  Sender: FDA-Public Use
  Company Number: 2024A061335

PATIENT
  Sex: Female

DRUGS (3)
  1. CRESTOR [Suspect]
     Active Substance: ROSUVASTATIN CALCIUM
     Route: 048
  2. TYLENOL [Concomitant]
     Active Substance: ACETAMINOPHEN
  3. UNSPECIFIED INGREDIENT [Concomitant]
     Active Substance: UNSPECIFIED INGREDIENT

REACTIONS (8)
  - Disease progression [Unknown]
  - Myalgia [Recovered/Resolved]
  - Pain [Unknown]
  - Arthralgia [Unknown]
  - Blood alkaline phosphatase increased [Unknown]
  - Low density lipoprotein abnormal [Unknown]
  - Blood creatine increased [Unknown]
  - Decreased activity [Unknown]
